FAERS Safety Report 6596826-9 (Version None)
Quarter: 2010Q1

REPORT INFORMATION
  Report Type: 
  Country: None (occurrence: None)
  Receive Date: 20100223
  Receipt Date: 20100212
  Transmission Date: 20100710
  Serious: Yes (Death)
  Sender: FDA-Public Use
  Company Number: GXKR2010DE02046

PATIENT
  Sex: Female
  Weight: 64 kg

DRUGS (4)
  1. NEOTAXAN (NGX) [Suspect]
     Indication: OVARIAN CANCER
     Dosage: 175 MG/M2, QD
     Route: 042
     Dates: start: 20100210, end: 20100210
  2. FORTECORTIN [Concomitant]
     Dosage: 20 MG, QD
     Route: 042
     Dates: start: 20100210, end: 20100210
  3. FAMOTIDINE [Concomitant]
     Dosage: 1 DF
     Route: 042
     Dates: start: 20100210, end: 20100210
  4. FENISTIL [Concomitant]
     Dosage: 1 DF
     Route: 042
     Dates: start: 20100210, end: 20100210

REACTIONS (7)
  - CARDIAC ARREST [None]
  - FLUSHING [None]
  - HYPERSENSITIVITY [None]
  - PARAESTHESIA [None]
  - PULMONARY EMBOLISM [None]
  - RASH [None]
  - RESPIRATORY FAILURE [None]
